FAERS Safety Report 7996584-7 (Version None)
Quarter: 2011Q4

REPORT INFORMATION
  Report Type: 
  Country: None (occurrence: None)
  Receive Date: 20111221
  Receipt Date: 20111212
  Transmission Date: 20120403
  Serious: Yes (Hospitalization)
  Sender: FDA-Public Use
  Company Number: US-BIOGENIDEC-2011BI038668

PATIENT
  Age: 25 Year
  Sex: Female

DRUGS (1)
  1. AVONEX [Suspect]
     Indication: MULTIPLE SCLEROSIS
     Route: 030
     Dates: start: 20111001, end: 20111008

REACTIONS (9)
  - DYSARTHRIA [None]
  - ABASIA [None]
  - FEELING ABNORMAL [None]
  - VOMITING [None]
  - PULSE ABSENT [None]
  - DRY THROAT [None]
  - GAIT DISTURBANCE [None]
  - HALLUCINATION [None]
  - MENTAL STATUS CHANGES [None]
